FAERS Safety Report 18467976 (Version 1)
Quarter: 2020Q4

REPORT INFORMATION
  Report Type: Spontaneous
  Country: US (occurrence: US)
  Receive Date: 20201104
  Receipt Date: 20201104
  Transmission Date: 20210114
  Serious: Yes (Hospitalization)
  Sender: FDA-Public Use
  Company Number: None

PATIENT
  Sex: Female

DRUGS (1)
  1. DEFERASIROX 360 MG ZYDUS PHARMACEUTICALS (USA) [Suspect]
     Active Substance: DEFERASIROX
     Indication: HAEMOCHROMATOSIS
     Dosage: ?          OTHER FREQUENCY:EVERY MORNING;  360 MG?
     Route: 048

REACTIONS (1)
  - Coronavirus infection [None]
